FAERS Safety Report 8860894 (Version 2)
Quarter: 2012Q4

REPORT INFORMATION
  Report Type: 
  Country: US (occurrence: US)
  Receive Date: 20121025
  Receipt Date: 20121207
  Transmission Date: 20130627
  Serious: No
  Sender: FDA-Public Use
  Company Number: US-ROXANE LABORATORIES, INC.-2012-RO-02009RO

PATIENT
  Sex: Male

DRUGS (3)
  1. OXYMORPHONE HYDROCHLORIDE [Suspect]
     Indication: NECK PAIN
     Route: 048
  2. XANAX [Concomitant]
  3. MOBIC [Concomitant]

REACTIONS (3)
  - Inadequate analgesia [Not Recovered/Not Resolved]
  - Therapeutic response delayed [Not Recovered/Not Resolved]
  - Product quality issue [Not Recovered/Not Resolved]
